FAERS Safety Report 4639596-3 (Version None)
Quarter: 2005Q2

REPORT INFORMATION
  Report Type: 
  Country: None (occurrence: None)
  Receive Date: 20050415
  Receipt Date: 20040324
  Transmission Date: 20051028
  Serious: Yes (Hospitalization)
  Sender: FDA-Public Use
  Company Number: GXKR2004NL00577

PATIENT
  Age: 45 Year
  Sex: Male

DRUGS (2)
  1. SALBUTAMOL (NGX) (SALBUTAMOL) AEROSOL [Suspect]
     Indication: DYSPNOEA EXERTIONAL
     Dosage: DF, ONCE/SINGLE, INHALATION
     Route: 055
  2. PHENYTOIN [Concomitant]

REACTIONS (7)
  - ANURIA [None]
  - CYANOSIS [None]
  - DYSPNOEA [None]
  - HYPOTENSION [None]
  - LACTIC ACIDOSIS [None]
  - SHOSHIN BERIBERI [None]
  - VITAMIN B1 DECREASED [None]
